FAERS Safety Report 16937405 (Version 3)
Quarter: 2020Q1

REPORT INFORMATION
  Report Type: Spontaneous
  Country: US (occurrence: US)
  Receive Date: 20191018
  Receipt Date: 20200128
  Transmission Date: 20200409
  Serious: No
  Sender: FDA-Public Use
  Company Number: US-SHIRE-US201934973

PATIENT
  Age: 25 Year
  Sex: Female
  Weight: 57.6 kg

DRUGS (8)
  1. GATTEX [Suspect]
     Active Substance: TEDUGLUTIDE\WATER
     Indication: SHORT-BOWEL SYNDROME
     Dosage: 0.2600 UNK, UNK
     Route: 058
     Dates: start: 20151106, end: 20191015
  2. DOXYCYCLINE. [Concomitant]
     Active Substance: DOXYCYCLINE
     Indication: PRODUCT USED FOR UNKNOWN INDICATION
     Route: 065
  3. CALCIUM CARBONATE. [Concomitant]
     Active Substance: CALCIUM CARBONATE
     Indication: PRODUCT USED FOR UNKNOWN INDICATION
     Dosage: 500 MILLIGRAM, 2X/DAY:BID
     Route: 048
  4. AUGMENTIN [Concomitant]
     Active Substance: AMOXICILLIN\CLAVULANATE POTASSIUM
     Indication: PRODUCT USED FOR UNKNOWN INDICATION
     Route: 065
  5. GATTEX [Suspect]
     Active Substance: TEDUGLUTIDE\WATER
     Dosage: 2.6 MILLIGRAM, 1X/DAY:QD
     Route: 058
     Dates: start: 20151114, end: 20191015
  6. GATTEX [Suspect]
     Active Substance: TEDUGLUTIDE\WATER
     Dosage: UNK
     Route: 058
     Dates: start: 20191022
  7. MULTIVITAMINS [VITAMINS NOS] [Concomitant]
     Active Substance: VITAMINS
     Indication: PRODUCT USED FOR UNKNOWN INDICATION
     Route: 065
  8. ERGOCALCIFEROL. [Concomitant]
     Active Substance: ERGOCALCIFEROL
     Indication: PRODUCT USED FOR UNKNOWN INDICATION
     Dosage: 5000 INTERNATIONAL UNIT, 1X/DAY:QD
     Route: 048

REACTIONS (7)
  - Viral infection [Unknown]
  - Vomiting [Recovered/Resolved]
  - Eructation [Recovered/Resolved]
  - Condition aggravated [Unknown]
  - Dehydration [Recovered/Resolved]
  - Nausea [Not Recovered/Not Resolved]
  - Hot flush [Recovered/Resolved]

NARRATIVE: CASE EVENT DATE: 2015
